FAERS Safety Report 6728785-X (Version None)
Quarter: 2010Q2

REPORT INFORMATION
  Report Type: 
  Country: None (occurrence: None)
  Receive Date: 20100517
  Receipt Date: 20100223
  Transmission Date: 20101027
  Serious: No
  Sender: FDA-Public Use
  Company Number: US-ABBOTT-10P-163-0626077-00

PATIENT
  Sex: Female
  Weight: 54.026 kg

DRUGS (3)
  1. SIMCOR [Suspect]
     Indication: BLOOD CHOLESTEROL INCREASED
     Dosage: 500/20 DAILY
     Dates: start: 20091001, end: 20100222
  2. BLOOD PRESSURE MEDICATIONS [Concomitant]
     Indication: BLOOD PRESSURE
  3. SYNTHROID [Concomitant]
     Indication: DRUG USE FOR UNKNOWN INDICATION

REACTIONS (7)
  - CONSTIPATION [None]
  - FEELING ABNORMAL [None]
  - FLUSHING [None]
  - INSOMNIA [None]
  - MUSCLE SPASMS [None]
  - NOCTURIA [None]
  - PRURITUS [None]
